FAERS Safety Report 9248845 (Version 6)
Quarter: 2013Q4

REPORT INFORMATION
  Report Type: Report from Study
  Country: BR (occurrence: BR)
  Receive Date: 20130423
  Receipt Date: 20131121
  Transmission Date: 20140711
  Serious: Yes (Hospitalization, Other)
  Sender: FDA-Public Use
  Company Number: BR-ROCHE-1217235

PATIENT
  Age: 67 Year
  Sex: Female
  Weight: 39 kg

DRUGS (6)
  1. ACTEMRA [Suspect]
     Indication: RHEUMATOID ARTHRITIS
     Dosage: MOST RECENT INFUSION: 28/JUN/2013
     Route: 042
     Dates: start: 20130322
  2. ACTEMRA [Suspect]
     Route: 042
     Dates: start: 201305
  3. ACTEMRA [Suspect]
     Route: 042
     Dates: start: 20130628
  4. ENALAPRIL [Concomitant]
     Indication: HYPERTENSION
     Route: 065
  5. ACTONEL [Concomitant]
     Indication: OSTEOPOROSIS
  6. HYDROCHLOROTHIAZIDE [Concomitant]
     Indication: HYPERTENSION

REACTIONS (10)
  - Weight decreased [Recovered/Resolved]
  - Herpes zoster [Recovered/Resolved]
  - Osteomyelitis [Recovered/Resolved]
  - Herpes virus infection [Unknown]
  - Arthralgia [Recovering/Resolving]
  - Arthralgia [Recovering/Resolving]
  - Drug effect delayed [Unknown]
  - Dizziness [Recovered/Resolved]
  - Blood pressure fluctuation [Unknown]
  - Arthralgia [Recovered/Resolved]
